FAERS Safety Report 6927515-6 (Version None)
Quarter: 2010Q3

REPORT INFORMATION
  Report Type: 
  Country: None (occurrence: None)
  Receive Date: 20100812
  Receipt Date: 20100805
  Transmission Date: 20110219
  Serious: Yes (Hospitalization)
  Sender: FDA-Public Use
  Company Number: DSU-2010-03954

PATIENT
  Age: 86 Year
  Sex: Male
  Weight: 68.0396 kg

DRUGS (10)
  1. WELCHOL [Suspect]
     Indication: BLOOD CHOLESTEROL INCREASED
     Dosage: 1250 MG (1250 MG, QD), PER ORAL
     Route: 048
     Dates: start: 20060101, end: 20100401
  2. WELCHOL [Suspect]
     Indication: BLOOD GLUCOSE INCREASED
     Dosage: 1250 MG (1250 MG, QD), PER ORAL
     Route: 048
     Dates: start: 20060101, end: 20100401
  3. WELCHOL [Suspect]
     Indication: BLOOD CHOLESTEROL INCREASED
     Dosage: 1250 MG (1250 MG, QD), PER ORAL
     Route: 048
     Dates: start: 20100401
  4. WELCHOL [Suspect]
     Indication: BLOOD GLUCOSE INCREASED
     Dosage: 1250 MG (1250 MG, QD), PER ORAL
     Route: 048
     Dates: start: 20100401
  5. INSULIN (INSULIN) (INSULIN) [Concomitant]
  6. SLOW RELEASE OTC NIACIN (NICOTINIC ACID) (NICOTINIC ACID) [Concomitant]
  7. ZESTRIL [Concomitant]
  8. ZOLOFT (SERTRALINE) (SERTRALINE) [Concomitant]
  9. COUMADIN [Concomitant]
  10. ARICEPT [Concomitant]

REACTIONS (4)
  - CEREBROVASCULAR ACCIDENT [None]
  - COLITIS MICROSCOPIC [None]
  - CONDITION AGGRAVATED [None]
  - DRUG INEFFECTIVE [None]
